FAERS Safety Report 13322478 (Version 1)
Quarter: 2017Q1

REPORT INFORMATION
  Report Type: Not Available
  Country: None (occurrence: US)
  Receive Date: 20170309
  Receipt Date: 20170309
  Transmission Date: 20170428
  Serious: No
  Sender: FDA-Public Use
  Company Number: US-AKORN-40254

PATIENT
  Age: 70 Year
  Sex: Male
  Weight: 167 kg

DRUGS (1)
  1. VALPROIC ACID ORAL SOLUTION [Suspect]
     Active Substance: VALPROIC ACID

REACTIONS (2)
  - Alopecia [None]
  - Skin odour abnormal [None]
